FAERS Safety Report 8062136-6 (Version None)
Quarter: 2012Q1

REPORT INFORMATION
  Report Type: 
  Country: None (occurrence: None)
  Receive Date: 20120123
  Receipt Date: 20120111
  Transmission Date: 20120608
  Serious: Yes (Death, Hospitalization, Other)
  Sender: FDA-Public Use
  Company Number: JP-GENZYME-THYM-1003079

PATIENT
  Sex: Female
  Weight: 36 kg

DRUGS (29)
  1. CLEMASTINE FUMARATE [Concomitant]
     Indication: PROPHYLAXIS
     Dosage: UNK
     Route: 065
     Dates: start: 20111005, end: 20111006
  2. LEVOFLOXACIN [Concomitant]
     Indication: INFECTION PROPHYLAXIS
     Dosage: UNK
     Route: 065
     Dates: start: 20111003, end: 20111015
  3. TACROLIMUS [Concomitant]
     Indication: PROPHYLAXIS
     Dosage: UNK
     Route: 065
     Dates: start: 20111010, end: 20111105
  4. FILGRASTIM [Concomitant]
     Indication: LEUKAEMIA
     Dosage: UNK
     Route: 065
     Dates: start: 20111012, end: 20111211
  5. VINCRISTINE SULFATE [Concomitant]
     Indication: LEUKAEMIA
     Dosage: UNK
     Route: 065
     Dates: start: 20111125, end: 20111219
  6. THYMOGLOBULIN [Suspect]
     Indication: BONE MARROW CONDITIONING REGIMEN
     Dosage: 100 MG, QD
     Route: 065
     Dates: start: 20111005, end: 20111006
  7. ITRACONAZOLE [Concomitant]
     Indication: INFECTION PROPHYLAXIS
     Dosage: UNK
     Route: 065
     Dates: start: 20111003, end: 20111217
  8. UNKNOWN DRUG [Concomitant]
     Indication: INFECTION PROPHYLAXIS
     Dosage: UNK
     Route: 065
     Dates: start: 20111003, end: 20111102
  9. MELPHALAN [Concomitant]
     Indication: LEUKAEMIA
     Dosage: UNK
     Route: 065
     Dates: start: 20111007, end: 20111008
  10. MYCOPHENOLATE MOFETIL [Concomitant]
     Indication: PROPHYLAXIS
     Dosage: UNK
     Route: 065
  11. DOXORUBICIN HCL [Concomitant]
     Indication: LEUKAEMIA
     Dosage: UNK
     Route: 065
     Dates: start: 20111125, end: 20111219
  12. LOXOPROFEN SODIUM [Concomitant]
     Indication: PROPHYLAXIS
     Dosage: UNK
     Route: 065
     Dates: start: 20111005, end: 20111206
  13. RED BLOOD CELLS, CONCENTRATED [Concomitant]
     Indication: LEUKAEMIA
     Dosage: UNK
     Route: 065
     Dates: start: 20111018, end: 20111207
  14. AZULENE SODIUM SULFONATE [Concomitant]
     Indication: INFECTION PROPHYLAXIS
     Dosage: UNK
     Route: 065
     Dates: start: 20111003, end: 20111217
  15. DORIPENEM HYDRATE [Concomitant]
     Indication: INFECTION PROPHYLAXIS
     Dosage: UNK
     Route: 065
     Dates: start: 20111019, end: 20111024
  16. FLUDARABINE PHOSPHATE [Concomitant]
     Indication: LEUKAEMIA
     Dosage: UNK
     Route: 065
     Dates: start: 20111005, end: 20111009
  17. URSODIOL [Concomitant]
     Indication: PROPHYLAXIS
     Dosage: UNK
     Route: 065
     Dates: start: 20111003, end: 20111217
  18. ACYCLOVIR [Concomitant]
     Indication: INFECTION PROPHYLAXIS
     Dosage: UNK
     Route: 065
     Dates: start: 20111003, end: 20111216
  19. PREDNISOLONE [Concomitant]
     Indication: LEUKAEMIA
     Dosage: UNK
     Route: 065
     Dates: start: 20111125, end: 20111220
  20. METHYLPREDNISOLONE SODIUM SUCCINATE [Concomitant]
     Indication: PROPHYLAXIS
     Dosage: UNK
     Route: 065
     Dates: start: 20111005, end: 20111006
  21. FAMOTIDINE [Concomitant]
     Indication: PROPHYLAXIS
     Dosage: UNK
     Route: 065
     Dates: start: 20111003, end: 20111015
  22. THYROID THERAPY [Concomitant]
     Indication: HYPOTHYROIDISM
     Dosage: UNK
     Route: 065
     Dates: start: 20111003, end: 20111217
  23. HYDROCORTISONE SODIUM PHOSPHATE [Concomitant]
     Indication: ALLERGY PROPHYLAXIS
     Dosage: UNK
     Route: 065
     Dates: start: 20111011, end: 20111025
  24. GRANISETRON HCL [Concomitant]
     Indication: PROPHYLAXIS
     Dosage: UNK
     Route: 065
     Dates: start: 20111005, end: 20111219
  25. HEPARIN SODIUM [Concomitant]
     Indication: PROPHYLAXIS
     Dosage: UNK
     Route: 065
     Dates: start: 20111005, end: 20111115
  26. REBAMIPIDE [Concomitant]
     Indication: PROPHYLAXIS
     Dosage: UNK
     Route: 065
     Dates: start: 20111003, end: 20111217
  27. PLATELETS, CONCENTRATED [Concomitant]
     Indication: LEUKAEMIA
     Dosage: UNK
     Route: 065
     Dates: start: 20111015, end: 20111219
  28. ETOPOSIDE [Concomitant]
     Indication: LEUKAEMIA
     Dosage: UNK
     Route: 065
     Dates: start: 20111125, end: 20111219
  29. LACTATED RINGER'S [Concomitant]
     Indication: LEUKAEMIA
     Dosage: UNK
     Route: 065
     Dates: start: 20111124, end: 20111212

REACTIONS (11)
  - DISEASE PROGRESSION [None]
  - BLOOD CALCIUM INCREASED [None]
  - NAUSEA [None]
  - HYPOKALAEMIA [None]
  - ABDOMINAL PAIN UPPER [None]
  - POST TRANSPLANT LYMPHOPROLIFERATIVE DISORDER [None]
  - DISSEMINATED INTRAVASCULAR COAGULATION [None]
  - OTITIS MEDIA [None]
  - CYTOMEGALOVIRUS VIRAEMIA [None]
  - LOWER RESPIRATORY TRACT INFECTION BACTERIAL [None]
  - ABDOMINAL INFECTION [None]
